FAERS Safety Report 21964747 (Version 1)
Quarter: 2023Q1

REPORT INFORMATION
  Report Type: 
  Country: None (occurrence: None)
  Receive Date: 20230207
  Receipt Date: 20230207
  Transmission Date: 20230418
  Serious: Yes (Other)
  Sender: FDA-Public Use
  Company Number: None

PATIENT
  Age: 16 Year
  Sex: Female

DRUGS (1)
  1. MYORISAN [Suspect]
     Active Substance: ISOTRETINOIN

REACTIONS (10)
  - Quality of life decreased [None]
  - Dry eye [None]
  - Nasal dryness [None]
  - Lip dry [None]
  - Dry skin [None]
  - Epistaxis [None]
  - Depressed mood [None]
  - Halo vision [None]
  - Off label use [Recovered/Resolved]
  - Tearfulness [None]
